FAERS Safety Report 4938908-0 (Version None)
Quarter: 2006Q1

REPORT INFORMATION
  Report Type: 
  Country: None (occurrence: None)
  Receive Date: 20060309
  Receipt Date: 20050324
  Transmission Date: 20060701
  Serious: Yes (Hospitalization)
  Sender: FDA-Public Use
  Company Number: US-MERCK-0503USA04784

PATIENT
  Age: 90 Year
  Sex: Female
  Weight: 57 kg

DRUGS (1)
  1. VIOXX [Suspect]
     Indication: ARTHRITIS
     Route: 048
     Dates: start: 20010201, end: 20040214

REACTIONS (13)
  - ABDOMINAL PAIN [None]
  - ACUTE PRERENAL FAILURE [None]
  - CARDIAC FAILURE CONGESTIVE [None]
  - CEREBROVASCULAR ACCIDENT [None]
  - DEMENTIA [None]
  - GASTRIC DISORDER [None]
  - HYPERNATRAEMIA [None]
  - OTITIS MEDIA ACUTE [None]
  - PNEUMONIA [None]
  - PNEUMONIA ASPIRATION [None]
  - SKELETAL INJURY [None]
  - TRANSIENT ISCHAEMIC ATTACK [None]
  - URINARY TRACT INFECTION [None]
